FAERS Safety Report 7172431-0 (Version None)
Quarter: 2010Q4

REPORT INFORMATION
  Report Type: 
  Country: None (occurrence: None)
  Receive Date: 20101217
  Receipt Date: 20100208
  Transmission Date: 20110411
  Serious: No
  Sender: FDA-Public Use
  Company Number: US-AMGEN-TCS389165

PATIENT

DRUGS (7)
  1. ENBREL [Suspect]
     Indication: PSORIASIS
     Dosage: 50 MG, 2 TIMES/WK
     Route: 058
     Dates: start: 20091226, end: 20100126
  2. ENBREL [Suspect]
     Indication: PSORIATIC ARTHROPATHY
  3. ASPIRIN [Suspect]
     Dosage: UNK UNK, UNK
     Dates: start: 20090101
  4. CLOBETASOL [Concomitant]
     Dosage: UNK UNK, UNK
     Dates: start: 20090701
  5. RAMIPRIL [Concomitant]
     Dosage: UNK UNK, UNK
     Dates: start: 20040501
  6. VENLAFAXINE HCL [Concomitant]
     Dosage: UNK UNK, UNK
     Dates: start: 19960101
  7. SIMVASTATIN [Concomitant]
     Dosage: UNK UNK, UNK
     Dates: start: 20090501

REACTIONS (1)
  - TINNITUS [None]
